FAERS Safety Report 9509184 (Version 1)
Quarter: 2013Q3

REPORT INFORMATION
  Report Type: Spontaneous
  Country: US (occurrence: US)
  Receive Date: 20130909
  Receipt Date: 20130909
  Transmission Date: 20140515
  Serious: No
  Sender: FDA-Public Use
  Company Number: US-BRISTOL-MYERS SQUIBB COMPANY-19026004

PATIENT
  Age: 78 Year
  Sex: Female
  Weight: 86.17 kg

DRUGS (3)
  1. ABILIFY TABS 2 MG [Suspect]
     Indication: DEPRESSION
     Dosage: 1DF: HALF TABLET OF 2 MG TABLET
  2. WARFARIN SODIUM [Suspect]
     Indication: CARDIAC OPERATION
  3. PAXIL [Concomitant]

REACTIONS (2)
  - International normalised ratio decreased [Unknown]
  - Therapeutic response unexpected [Unknown]
